FAERS Safety Report 23932992 (Version 3)
Quarter: 2024Q2

REPORT INFORMATION
  Report Type: Report from Study
  Country: CN (occurrence: CN)
  Receive Date: 20240603
  Receipt Date: 20240617
  Transmission Date: 20240716
  Serious: Yes (Hospitalization, Other)
  Sender: FDA-Public Use
  Company Number: CN-AMGEN-CHNNI2024104200

PATIENT
  Age: 83 Year
  Sex: Female
  Weight: 47 kg

DRUGS (6)
  1. DENOSUMAB [Suspect]
     Active Substance: DENOSUMAB
     Indication: Osteoporosis postmenopausal
     Dosage: 60 MILLIGRAM
     Route: 058
     Dates: start: 20230926
  2. OMEPRAZOLE [Concomitant]
     Active Substance: DONEPEZIL HYDROCHLORIDE\OMEPRAZOLE\OMEPRAZOLE MAGNESIUM
     Dosage: 20-40 MILLIGRAM
     Route: 048
     Dates: start: 20230404, end: 20231207
  3. ACETYLCYSTEINE [Concomitant]
     Active Substance: ACETYLCYSTEINE
     Dosage: 0.6 GRAM AND 3 MILLILITER
     Route: 048
     Dates: start: 20230606, end: 20231208
  4. CALCIUM CARBONATE\CHOLECALCIFEROL [Concomitant]
     Active Substance: CALCIUM CARBONATE\CHOLECALCIFEROL
     Dosage: 1 UNK AND 1.25  MICROGRAM
     Route: 048
     Dates: start: 20230926, end: 20240329
  5. COMPOUND GLYCYRRHIZA [Concomitant]
     Dosage: 10 MILLILITER
     Route: 048
     Dates: start: 20231127, end: 20231207
  6. AMINOPHYLLINE\CHLORPHENIRAMINE MALEATE\METHOXYPHENAMINE HYDROCHLORIDE\ [Concomitant]
     Active Substance: AMINOPHYLLINE\CHLORPHENIRAMINE MALEATE\METHOXYPHENAMINE HYDROCHLORIDE\NOSCAPINE
     Dosage: 2 UNK
     Route: 048
     Dates: start: 20231127, end: 202312

REACTIONS (12)
  - Gastritis [Recovered/Resolved]
  - Deep vein thrombosis [Not Recovered/Not Resolved]
  - Nephrolithiasis [Not Recovered/Not Resolved]
  - Cardiac failure [Not Recovered/Not Resolved]
  - Pneumonia [Recovered/Resolved]
  - Chronic gastritis [Not Recovered/Not Resolved]
  - Asymptomatic bacteriuria [Not Recovered/Not Resolved]
  - Electrolyte imbalance [Not Recovered/Not Resolved]
  - Chest discomfort [Recovered/Resolved]
  - Lung opacity [Not Recovered/Not Resolved]
  - Cough [Recovered/Resolved]
  - Upper respiratory tract infection [Recovered/Resolved]

NARRATIVE: CASE EVENT DATE: 20231127
